FAERS Safety Report 9786550 (Version 1)
Quarter: 2013Q4

REPORT INFORMATION
  Report Type: Spontaneous
  Country: FR (occurrence: FR)
  Receive Date: 20131227
  Receipt Date: 20131227
  Transmission Date: 20140711
  Serious: Yes (Death, Life-Threatening)
  Sender: FDA-Public Use
  Company Number: FR-NOVOPROD-396380

PATIENT
  Age: 73 Year
  Sex: Male

DRUGS (12)
  1. VICTOZA [Suspect]
     Indication: TYPE 2 DIABETES MELLITUS
     Dosage: 0.6 MG, QD
     Route: 058
     Dates: start: 201112
  2. VICTOZA [Suspect]
     Dosage: 1.2 MG, QD
     Route: 058
  3. BYETTA [Suspect]
     Indication: TYPE 2 DIABETES MELLITUS
     Dosage: 5 ?G, BID
     Route: 065
     Dates: start: 200904
  4. BYETTA [Suspect]
     Dosage: 10 ?G, BID
     Route: 065
     Dates: end: 201112
  5. PANTOPRAZOLE [Concomitant]
     Dosage: 40 MG, BID
     Route: 065
  6. VITAMIN B12                        /00056201/ [Concomitant]
     Dosage: 1000 ?G, QD
     Route: 065
  7. FOLIC ACID [Concomitant]
     Dosage: 5 MG, QD
     Route: 065
  8. OXEOL [Concomitant]
     Dosage: 10 MG, QD
     Route: 065
  9. ESIDREX [Concomitant]
     Dosage: 12.5 MG, QD
     Route: 065
  10. CANDESARTAN [Concomitant]
     Dosage: 8 MG, BID
     Route: 065
  11. SINGULAIR [Concomitant]
     Dosage: 10 MG IN EVENING
     Route: 065
  12. SPIRIVA [Concomitant]
     Dosage: UNKNOWN
     Route: 065

REACTIONS (1)
  - Pancreatic carcinoma metastatic [Fatal]
